FAERS Safety Report 16526027 (Version 2)
Quarter: 2019Q3

REPORT INFORMATION
  Report Type: Spontaneous
  Country: JP (occurrence: JP)
  Receive Date: 20190703
  Receipt Date: 20190704
  Transmission Date: 20191004
  Serious: Yes (Death, Other)
  Sender: FDA-Public Use
  Company Number: JP-AUROBINDO-AUR-APL-2019-038430

PATIENT

DRUGS (5)
  1. FOLOTYN [Suspect]
     Active Substance: PRALATREXATE
     Indication: PERIPHERAL T-CELL LYMPHOMA UNSPECIFIED
     Dosage: 30 MILLIGRAM/SQ. METER
     Route: 042
     Dates: start: 201803
  2. FOLIC ACID. [Concomitant]
     Active Substance: FOLIC ACID
     Indication: PROPHYLAXIS
     Dosage: 1 MILLIGRAM, ONCE A DAY
     Route: 048
  3. MUNDESINE [Suspect]
     Active Substance: FORODESINE HYDROCHLORIDE
     Indication: PERIPHERAL T-CELL LYMPHOMA UNSPECIFIED
     Dosage: 600 MILLIGRAM, ONCE A DAY
     Route: 065
     Dates: start: 201804
  4. VITAMIN B12 [Concomitant]
     Active Substance: CYANOCOBALAMIN
     Indication: PROPHYLAXIS
     Dosage: UNK
     Route: 065
  5. FOLOTYN [Suspect]
     Active Substance: PRALATREXATE
     Dosage: 30 MILLIGRAM/SQ. METER
     Route: 042
     Dates: start: 201805

REACTIONS (6)
  - Neutrophil count decreased [Unknown]
  - Lymphopenia [Unknown]
  - Pneumonia [Fatal]
  - Stomatitis [Recovered/Resolved]
  - Malignant neoplasm progression [Unknown]
  - White blood cell count decreased [Unknown]

NARRATIVE: CASE EVENT DATE: 201805
